FAERS Safety Report 16022437 (Version 2)
Quarter: 2019Q3

REPORT INFORMATION
  Report Type: Report from Study
  Country: CN (occurrence: CN)
  Receive Date: 20190301
  Receipt Date: 20190822
  Transmission Date: 20191004
  Serious: Yes (Other)
  Sender: FDA-Public Use
  Company Number: CN-JNJFOC-20190227021

PATIENT
  Age: 43 Year
  Sex: Male
  Weight: 97.5 kg

DRUGS (20)
  1. BEDAQUILINE [Suspect]
     Active Substance: BEDAQUILINE
     Indication: TUBERCULOSIS
     Route: 048
     Dates: start: 20181010, end: 20181023
  2. MOXIFLOXACIN. [Suspect]
     Active Substance: MOXIFLOXACIN
     Indication: TUBERCULOSIS
     Route: 048
     Dates: start: 20181009, end: 20181126
  3. BEDAQUILINE [Suspect]
     Active Substance: BEDAQUILINE
     Route: 048
     Dates: start: 20181222, end: 20190418
  4. LINEZOLID. [Suspect]
     Active Substance: LINEZOLID
     Route: 048
     Dates: start: 20181222, end: 20190329
  5. LINEZOLID. [Suspect]
     Active Substance: LINEZOLID
     Route: 048
     Dates: start: 20190330
  6. AMINOSALICYLIC ACID [Suspect]
     Active Substance: AMINOSALICYLIC ACID
     Indication: TUBERCULOSIS
     Route: 048
     Dates: start: 20181009, end: 20181126
  7. CYCLOSERINE. [Suspect]
     Active Substance: CYCLOSERINE
     Indication: TUBERCULOSIS
     Route: 048
     Dates: start: 20181009, end: 20181126
  8. METFORMIN [Concomitant]
     Active Substance: METFORMIN HYDROCHLORIDE
     Route: 065
     Dates: start: 20181009
  9. BEDAQUILINE [Suspect]
     Active Substance: BEDAQUILINE
     Route: 048
     Dates: start: 20181025, end: 20181126
  10. MOXIFLOXACIN. [Suspect]
     Active Substance: MOXIFLOXACIN
     Route: 048
     Dates: start: 20181206
  11. LINEZOLID. [Suspect]
     Active Substance: LINEZOLID
     Indication: TUBERCULOSIS
     Route: 048
     Dates: start: 20181009, end: 20181126
  12. CLOFAZIMINE [Suspect]
     Active Substance: CLOFAZIMINE
     Indication: TUBERCULOSIS
     Route: 048
     Dates: start: 20181009, end: 20181126
  13. CLOFAZIMINE [Suspect]
     Active Substance: CLOFAZIMINE
     Route: 048
     Dates: start: 20181206
  14. NOVORAPID [Concomitant]
     Active Substance: INSULIN ASPART
     Route: 065
     Dates: start: 20181009
  15. VITAMIN B6 [Concomitant]
     Active Substance: PYRIDOXINE HYDROCHLORIDE
     Route: 065
     Dates: start: 20190104
  16. CYCLOSERINE. [Suspect]
     Active Substance: CYCLOSERINE
     Route: 048
     Dates: start: 20181206
  17. AMINOSALICYLIC ACID [Suspect]
     Active Substance: AMINOSALICYLIC ACID
     Route: 048
     Dates: start: 20181206
  18. BASALIN [Concomitant]
     Active Substance: INSULIN GLARGINE
     Route: 065
     Dates: start: 20181009
  19. BICYCLOL [Concomitant]
     Active Substance: BICYCLOL
     Route: 065
     Dates: start: 20181009
  20. NOVOMIX [Concomitant]
     Active Substance: INSULIN ASPART
     Indication: PRODUCT USED FOR UNKNOWN INDICATION
     Route: 065
     Dates: start: 20181009

REACTIONS (3)
  - Aspartate aminotransferase increased [Unknown]
  - Myocardial ischaemia [Recovered/Resolved]
  - Anaemia [Unknown]

NARRATIVE: CASE EVENT DATE: 2018
